FAERS Safety Report 4584092-5 (Version None)
Quarter: 2005Q1

REPORT INFORMATION
  Report Type: 
  Country: None (occurrence: None)
  Receive Date: 20050211
  Receipt Date: 20050127
  Transmission Date: 20050727
  Serious: No
  Sender: FDA-Public Use
  Company Number: 10048

PATIENT
  Age: 15 Year
  Sex: 0

DRUGS (5)
  1. METHOTREXATE [Suspect]
     Indication: JUVENILE ARTHRITIS
     Dosage: 10 MG FORTNIGHTLY, SC
     Route: 058
  2. ETANERCEPT [Suspect]
     Indication: POLYARTHRITIS
     Dosage: 20 MG/WK, SC
     Route: 058
     Dates: start: 20040324
  3. ACETAMINOPHEN [Suspect]
     Dosage: SC
     Route: 058
  4. FOLIC ACID [Concomitant]
  5. ONDASETRON [Concomitant]

REACTIONS (2)
  - CONDITION AGGRAVATED [None]
  - ECZEMA [None]
